FAERS Safety Report 8485348-6 (Version None)
Quarter: 2012Q3

REPORT INFORMATION
  Report Type: 
  Country: None (occurrence: None)
  Receive Date: 20120703
  Receipt Date: 20120626
  Transmission Date: 20120928
  Serious: Yes (Hospitalization)
  Sender: FDA-Public Use
  Company Number: PR-JNJFOC-20100800633

PATIENT
  Sex: Female
  Weight: 64.86 kg

DRUGS (6)
  1. PERCOCET [Suspect]
     Indication: ILL-DEFINED DISORDER
  2. EXTRA STRENGTH TYLENOL [Suspect]
     Route: 065
  3. EXTRA STRENGTH TYLENOL [Suspect]
     Indication: HEADACHE
     Route: 065
     Dates: start: 20091228
  4. PRISTIQ [Concomitant]
  5. PREDNISONE [Concomitant]
  6. BUTALBITAL/ACETAMINOPHEN [Suspect]
     Indication: ILL-DEFINED DISORDER

REACTIONS (4)
  - ACUTE HEPATIC FAILURE [None]
  - DRUG ADMINISTRATION ERROR [None]
  - OVERDOSE [None]
  - PRODUCT QUALITY ISSUE [None]
